FAERS Safety Report 16267542 (Version 2)
Quarter: 2019Q2

REPORT INFORMATION
  Report Type: Report from Study
  Country: CH (occurrence: CH)
  Receive Date: 20190503
  Receipt Date: 20190513
  Transmission Date: 20190711
  Serious: No
  Sender: FDA-Public Use
  Company Number: CH-BEH-2017083645

PATIENT
  Sex: Male

DRUGS (2)
  1. HIZENTRA [Suspect]
     Active Substance: HUMAN IMMUNOGLOBULIN G
     Indication: PRODUCT USED FOR UNKNOWN INDICATION
     Dosage: 50 ML, QW 2 SITES OF INJ.
     Route: 065
  2. HIZENTRA [Suspect]
     Active Substance: HUMAN IMMUNOGLOBULIN G
     Dosage: 50 ML, QW 4 SITES OF INJ.
     Route: 065

REACTIONS (21)
  - Injection site haematoma [Unknown]
  - Chills [Recovered/Resolved]
  - Tonsillitis [Unknown]
  - Injection site mass [Unknown]
  - Injection site mass [Recovered/Resolved]
  - Palpitations [Recovered/Resolved]
  - Productive cough [Unknown]
  - Feeling abnormal [Recovered/Resolved]
  - Pharyngitis [Unknown]
  - Injection site pain [Unknown]
  - Fatigue [Unknown]
  - Chest discomfort [Unknown]
  - Ear infection [Unknown]
  - Bronchitis [Unknown]
  - Hyperhidrosis [Unknown]
  - Palpitations [Unknown]
  - Influenza [Unknown]
  - Gastrointestinal disorder [Unknown]
  - Nasopharyngitis [Recovered/Resolved]
  - Conjunctivitis [Unknown]
  - Dysphagia [Unknown]

NARRATIVE: CASE EVENT DATE: 20190209
